FAERS Safety Report 8741142 (Version 2)
Quarter: 2018Q2

REPORT INFORMATION
  Report Type: Spontaneous
  Country: US (occurrence: US)
  Receive Date: 20120824
  Receipt Date: 20180511
  Transmission Date: 20180711
  Serious: Yes (Hospitalization)
  Sender: FDA-Public Use
  Company Number: US-ASTRAZENECA-2012SE03306

PATIENT
  Age: 21706 Day
  Sex: Female
  Weight: 108.9 kg

DRUGS (2)
  1. VENTOLIN RESCUE INHALER [Concomitant]
  2. SYMBICORT [Suspect]
     Active Substance: BUDESONIDE\FORMOTEROL FUMARATE DIHYDRATE
     Indication: ASTHMA
     Dosage: 160/4.5, ORALLY 2 PUFFS TWICE DAILY.
     Route: 055

REACTIONS (6)
  - Dyspnoea [Unknown]
  - Pneumothorax [Recovered/Resolved]
  - Body height decreased [Unknown]
  - Malaise [Unknown]
  - Dysmenorrhoea [Unknown]
  - Pneumonia [Recovered/Resolved]

NARRATIVE: CASE EVENT DATE: 20180204
